FAERS Safety Report 15859228 (Version 1)
Quarter: 2019Q1

REPORT INFORMATION
  Report Type: Spontaneous
  Country: US (occurrence: US)
  Receive Date: 20190123
  Receipt Date: 20190123
  Transmission Date: 20190417
  Serious: Yes (Other)
  Sender: FDA-Public Use
  Company Number: US-AKORN PHARMACEUTICALS-2018AKN01938

PATIENT
  Sex: Male
  Weight: 72.56 kg

DRUGS (2)
  1. CLARAVIS [Suspect]
     Active Substance: ISOTRETINOIN
     Indication: ACNE
     Dosage: 60 MG, 1X/DAY
     Dates: start: 20180806, end: 201811
  2. MYORISAN [Suspect]
     Active Substance: ISOTRETINOIN
     Indication: ACNE
     Dosage: 60 MG, 1X/DAY
     Dates: start: 20180911, end: 201811

REACTIONS (1)
  - Depression [Not Recovered/Not Resolved]

NARRATIVE: CASE EVENT DATE: 2018
